FAERS Safety Report 5586130-X (Version None)
Quarter: 2007Q4

REPORT INFORMATION
  Report Type: 
  Country: None (occurrence: None)
  Receive Date: 20071205
  Receipt Date: 20061114
  Transmission Date: 20080405
  Serious: Yes (Life-Threatening, Other)
  Sender: FDA-Public Use
  Company Number: HQWYE212720JUL06

PATIENT
  Age: 70 Year
  Sex: Female
  Weight: 77.18 kg

DRUGS (1)
  1. EFFEXOR XR [Suspect]
     Indication: PAIN
     Dosage: 112.5 MG 1X PER 1 DAY
     Dates: start: 20060301, end: 20060601

REACTIONS (1)
  - ATRIAL FIBRILLATION [None]
